FAERS Safety Report 7444543-5 (Version None)
Quarter: 2011Q2

REPORT INFORMATION
  Report Type: 
  Country: None (occurrence: None)
  Receive Date: 20110429
  Receipt Date: 20110415
  Transmission Date: 20111010
  Serious: Yes (Death)
  Sender: FDA-Public Use
  Company Number: US-MYLANLABS-2011S1008075

PATIENT
  Age: 57 Year
  Sex: Female

DRUGS (1)
  1. METFORMIN HYDROCHLORIDE [Suspect]
     Indication: HYPERGLYCAEMIA
     Route: 065

REACTIONS (5)
  - RESPIRATORY FAILURE [None]
  - CARDIAC ARREST [None]
  - MYOCARDIAL INFARCTION [None]
  - LACTIC ACIDOSIS [None]
  - HYPOTENSION [None]
